FAERS Safety Report 8661186 (Version 3)
Quarter: 2013Q3

REPORT INFORMATION
  Report Type: Report from Study
  Country: JP (occurrence: JP)
  Receive Date: 20120711
  Receipt Date: 20130924
  Transmission Date: 20140515
  Serious: Yes (Hospitalization)
  Sender: FDA-Public Use
  Company Number: JP-009507513-1207JPN000103

PATIENT
  Age: 74 Year
  Sex: Male

DRUGS (25)
  1. ZOLINZA CAPSULES 100MG [Suspect]
     Indication: MYCOSIS FUNGOIDES
     Dosage: 400 MG, QD
     Route: 048
     Dates: start: 20120217, end: 20120221
  2. ZOLINZA CAPSULES 100MG [Suspect]
     Dosage: 400 MG, QD
     Route: 048
     Dates: start: 20120309, end: 20120413
  3. JANUVIA TABLETS 50MG [Concomitant]
     Indication: DIABETES MELLITUS
     Dosage: 50 MG, QD
     Route: 048
  4. BAKTAR [Concomitant]
     Indication: PROPHYLAXIS
     Dosage: 1 DF, QD
     Route: 048
  5. ITRIZOLE [Concomitant]
     Indication: PROPHYLAXIS
     Dosage: 20 ML, QD
     Route: 048
     Dates: end: 20120324
  6. OMEPRAL [Concomitant]
     Indication: GASTROOESOPHAGEAL REFLUX DISEASE
     Dosage: 10 MG, QD
     Route: 048
     Dates: end: 20120330
  7. BLOPRESS [Concomitant]
     Indication: HYPERTENSION
     Dosage: 4 MG, QD
     Route: 048
  8. PLETAAL [Concomitant]
     Indication: CEREBRAL INFARCTION
     Dosage: 50 MG, QD
     Route: 048
  9. PLETAAL [Concomitant]
     Dosage: 100 MG, BID
     Route: 048
     Dates: start: 20120320
  10. ALESION [Concomitant]
     Indication: MYCOSIS FUNGOIDES
     Dosage: 20 MG, QD
     Route: 048
  11. DAI-KENCHU-TO [Concomitant]
     Indication: ILEUS
     Dosage: 1 DF, TID
     Route: 048
     Dates: start: 20120320
  12. SLOW-K [Concomitant]
     Indication: CARDIAC FAILURE
     Dosage: 600 MG, TID
     Route: 048
     Dates: start: 20120221, end: 20120316
  13. ALDACTONE A [Concomitant]
     Indication: CARDIAC FAILURE
     Dosage: 25 MG, QD
     Route: 048
     Dates: start: 20120323, end: 20120326
  14. FIRSTCIN [Concomitant]
     Indication: PNEUMONIA
     Dosage: 1 G, BID
     Route: 042
     Dates: start: 20120216, end: 20120226
  15. FIRSTCIN [Concomitant]
     Dosage: 2 G, QD
     Route: 042
     Dates: start: 20120216, end: 20120226
  16. FIRSTCIN [Concomitant]
     Dosage: 1 G, BID
     Route: 042
     Dates: start: 20120327, end: 20120409
  17. FIRSTCIN [Concomitant]
     Dosage: 2 G, QD
     Route: 042
     Dates: start: 20120327, end: 20120408
  18. ADONA [Concomitant]
     Indication: MYCOSIS FUNGOIDES
     Route: 051
     Dates: start: 20120322
  19. OMEPRAL [Concomitant]
     Indication: GASTROINTESTINAL HAEMORRHAGE
     Dosage: 20 MG, BID
     Route: 042
     Dates: start: 20120327, end: 20120404
  20. FUNGUARD [Concomitant]
     Indication: PROPHYLAXIS
     Dosage: 75 MG, QD
     Route: 041
     Dates: start: 20120325, end: 20120328
  21. MAXIPIME [Concomitant]
     Indication: PNEUMONIA
     Dosage: 1 G, BID
     Route: 042
     Dates: start: 20120320, end: 20120326
  22. MAXIPIME [Concomitant]
     Dosage: 2 G, QD
     Route: 042
     Dates: start: 20120320, end: 20120326
  23. MAXIPIME [Concomitant]
     Dosage: 1 G, BID
     Route: 042
     Dates: start: 20120409, end: 20120416
  24. MAXIPIME [Concomitant]
     Dosage: 2 G, QD
     Route: 042
     Dates: start: 20120409, end: 20120415
  25. ZOSYN [Concomitant]
     Indication: PNEUMONIA
     Dosage: 4.5 G, TID
     Route: 042
     Dates: start: 20120307, end: 20120319

REACTIONS (5)
  - Ileus [Recovered/Resolved]
  - Arrhythmia [Recovering/Resolving]
  - Constipation [Recovered/Resolved]
  - Decreased appetite [Not Recovered/Not Resolved]
  - Decreased appetite [Not Recovered/Not Resolved]
